FAERS Safety Report 15145317 (Version 1)
Quarter: 2018Q3

REPORT INFORMATION
  Report Type: Spontaneous
  Country: US (occurrence: US)
  Receive Date: 20180713
  Receipt Date: 20180713
  Transmission Date: 20181010
  Serious: No
  Sender: FDA-Public Use
  Company Number: US-INTERCEPT-PMOCA2017001484

PATIENT

DRUGS (6)
  1. OCALIVA [Suspect]
     Active Substance: OBETICHOLIC ACID
     Indication: PRIMARY BILIARY CHOLANGITIS
     Dosage: 2.5 MG, QD
     Route: 048
     Dates: start: 201711
  2. OCALIVA [Suspect]
     Active Substance: OBETICHOLIC ACID
     Dosage: 5 MG, QD
     Route: 048
     Dates: start: 20170510, end: 201711
  3. NAPROXEN. [Concomitant]
     Active Substance: NAPROXEN
  4. AMITRIPTYLIN [Concomitant]
     Active Substance: AMITRIPTYLINE
  5. MULTIVITAMIN [Concomitant]
     Active Substance: VITAMINS
  6. NEXIUM [Concomitant]
     Active Substance: ESOMEPRAZOLE MAGNESIUM

REACTIONS (3)
  - Weight increased [Unknown]
  - Wrong technique in product usage process [Unknown]
  - Constipation [Unknown]

NARRATIVE: CASE EVENT DATE: 201711
